FAERS Safety Report 20311455 (Version 1)
Quarter: 2022Q1

REPORT INFORMATION
  Report Type: Report from Study
  Country: US (occurrence: US)
  Receive Date: 20220108
  Receipt Date: 20220108
  Transmission Date: 20220423
  Serious: Yes (Hospitalization)
  Sender: FDA-Public Use
  Company Number: US-ABBVIE-22K-163-4222692-00

PATIENT
  Sex: Female
  Weight: 65.058 kg

DRUGS (6)
  1. RINVOQ [Suspect]
     Active Substance: UPADACITINIB
     Indication: Rheumatoid arthritis
     Dosage: ER TABLET
     Route: 048
     Dates: start: 202110, end: 202112
  2. NAPROXEN [Suspect]
     Active Substance: NAPROXEN
     Indication: Product used for unknown indication
     Route: 065
  3. FLUZONE HIGH DOSE QUADRIVALENT [Concomitant]
     Indication: Product used for unknown indication
  4. LOSARTAN POTASSIUM ACCORD [Concomitant]
     Indication: Product used for unknown indication
  5. POTASSIUM [Concomitant]
     Active Substance: POTASSIUM
     Indication: Product used for unknown indication
     Dosage: 595(99) MG
  6. HYDROCHLOROTHIAZIDE [Concomitant]
     Active Substance: HYDROCHLOROTHIAZIDE
     Indication: Product used for unknown indication

REACTIONS (3)
  - Tongue erythema [Recovered/Resolved]
  - Tongue discomfort [Recovered/Resolved]
  - Rash [Recovered/Resolved]
